FAERS Safety Report 17142657 (Version 1)
Quarter: 2019Q4

REPORT INFORMATION
  Report Type: Spontaneous
  Country: HU (occurrence: HU)
  Receive Date: 20191211
  Receipt Date: 20191211
  Transmission Date: 20200122
  Serious: Yes (Hospitalization)
  Sender: FDA-Public Use
  Company Number: HU-JNJFOC-20191208901

PATIENT
  Age: 74 Year
  Sex: Female

DRUGS (11)
  1. CLEXANE [Concomitant]
     Active Substance: ENOXAPARIN SODIUM
     Dates: start: 20190130, end: 20190315
  2. LETROX [Concomitant]
     Active Substance: LEVOTHYROXINE SODIUM
     Dosage: UNK
  3. DIAPREL [Concomitant]
     Active Substance: GLICLAZIDE
     Dosage: UNK
  4. RIVAROXABAN [Suspect]
     Active Substance: RIVAROXABAN
     Route: 048
     Dates: start: 20190316
  5. CERUCAL [Concomitant]
     Active Substance: METOCLOPRAMIDE HYDROCHLORIDE
     Dosage: UNK
  6. COVERCARD [Concomitant]
     Active Substance: AMLODIPINE BESYLATE\PERINDOPRIL ARGININE
     Dosage: UNK
  7. PAXIRASOL [Concomitant]
     Dosage: UNK
  8. MILURIT [Concomitant]
     Active Substance: ALLOPURINOL
     Dosage: UNK
  9. CONCOR [Concomitant]
     Active Substance: BISOPROLOL FUMARATE
     Dosage: UNK
  10. RIVAROXABAN [Suspect]
     Active Substance: RIVAROXABAN
     Indication: ATRIAL FIBRILLATION
     Dosage: 20 MG, QD
     Route: 048
     Dates: start: 2017, end: 20190129
  11. CEFTRIAXONE. [Concomitant]
     Active Substance: CEFTRIAXONE

REACTIONS (8)
  - Diarrhoea [Recovered/Resolved]
  - Sputum purulent [Unknown]
  - Diverticulitis [Unknown]
  - Renal cyst [Unknown]
  - Diverticulum [Unknown]
  - Rectal haemorrhage [Unknown]
  - Nephropathy [Unknown]
  - Haematochezia [Recovered/Resolved]

NARRATIVE: CASE EVENT DATE: 20190129
